FAERS Safety Report 14238092 (Version 1)
Quarter: 2017Q4

REPORT INFORMATION
  Report Type: Spontaneous
  Country: US (occurrence: US)
  Receive Date: 20171130
  Receipt Date: 20171130
  Transmission Date: 20180321
  Serious: No
  Sender: FDA-Public Use
  Company Number: US-ASTRAZENECA-2017SF18880

PATIENT
  Sex: Female
  Weight: 70.3 kg

DRUGS (3)
  1. PROMETHAZINE WITH CODEINE [Concomitant]
     Active Substance: CODEINE PHOSPHATE\PROMETHAZINE HYDROCHLORIDE
  2. DOXYCYCLINE. [Concomitant]
     Active Substance: DOXYCYCLINE
     Indication: PROPHYLAXIS
     Route: 048
     Dates: start: 20171114
  3. PULMICORT FLEXHALER [Suspect]
     Active Substance: BUDESONIDE
     Indication: ASTHMA
     Route: 055
     Dates: start: 20171103

REACTIONS (16)
  - Condition aggravated [Unknown]
  - Pharyngeal oedema [Unknown]
  - Intentional product misuse [Unknown]
  - Throat tightness [Unknown]
  - Oropharyngeal pain [Unknown]
  - Nasal congestion [Unknown]
  - Asthma [Unknown]
  - Dyspnoea [Unknown]
  - Cough [Unknown]
  - Throat irritation [Unknown]
  - Wheezing [Unknown]
  - Hypersensitivity [Unknown]
  - Pruritus [Unknown]
  - Malaise [Unknown]
  - Productive cough [Unknown]
  - Drug dose omission [Unknown]
